FAERS Safety Report 16045298 (Version 2)
Quarter: 2019Q1

REPORT INFORMATION
  Report Type: Spontaneous
  Country: US (occurrence: US)
  Receive Date: 20190307
  Receipt Date: 20190318
  Transmission Date: 20190418
  Serious: Yes (Other)
  Sender: FDA-Public Use
  Company Number: US-009507513-1903USA001456

PATIENT
  Sex: Female
  Weight: 75.3 kg

DRUGS (10)
  1. COZAAR [Suspect]
     Active Substance: LOSARTAN POTASSIUM
     Indication: BLOOD PRESSURE ABNORMAL
     Dosage: TAKING FOR 4-5 YEARS SHE WAS ON A DIFFERENT DOSE
     Route: 048
  2. LEVOTHYROXINE SODIUM. [Concomitant]
     Active Substance: LEVOTHYROXINE SODIUM
     Indication: THYROID DISORDER
     Dosage: 75 MICROGRAM, QD
     Dates: start: 2012
  3. ASPIRIN. [Concomitant]
     Active Substance: ASPIRIN
     Indication: PROPHYLAXIS
     Dosage: 81 MILLIGRAM, QD
     Dates: start: 2007
  4. ATORVASTATIN [Concomitant]
     Active Substance: ATORVASTATIN
     Indication: BLOOD CHOLESTEROL INCREASED
     Dosage: 80MG ONE TABLET BY MOUTH ONCE A DAY
     Route: 048
     Dates: start: 201702, end: 201708
  5. ERGOCALCIFEROL. [Concomitant]
     Active Substance: ERGOCALCIFEROL
     Indication: BONE DENSITY ABNORMAL
     Dosage: 1.25MG/5000 UNITS ONE A WEEK; TAKING FOR 6 MONTHS
  6. ZOCOR [Suspect]
     Active Substance: SIMVASTATIN
     Indication: BLOOD CHOLESTEROL INCREASED
     Dosage: 40 MILLIGRAM
     Route: 048
     Dates: end: 2017
  7. OMEPRAZOLE. [Concomitant]
     Active Substance: OMEPRAZOLE
     Indication: DYSPEPSIA
     Dosage: 40 MILLIGRAM, QD
     Dates: start: 2007
  8. FERRALET 90 [Concomitant]
     Active Substance: ASCORBIC ACID\CYANOCOBALAMIN\DOCUSATE SODIUM\FOLIC ACID\IRON
     Indication: IRON DEFICIENCY
     Dosage: 1 TABLET EVERY DAY
     Route: 048
     Dates: start: 201708
  9. COZAAR [Suspect]
     Active Substance: LOSARTAN POTASSIUM
     Dosage: IT WAS INCREASED TO 50MG
     Route: 048
  10. COZAAR [Suspect]
     Active Substance: LOSARTAN POTASSIUM
     Dosage: 25MG ONCE A DAY
     Route: 048

REACTIONS (4)
  - Blood cholesterol increased [Recovering/Resolving]
  - Autoimmune hepatitis [Unknown]
  - Weight fluctuation [Unknown]
  - Hepatic enzyme increased [Not Recovered/Not Resolved]

NARRATIVE: CASE EVENT DATE: 2017
